FAERS Safety Report 18459039 (Version 1)
Quarter: 2020Q4

REPORT INFORMATION
  Report Type: Spontaneous
  Country: DE (occurrence: DE)
  Receive Date: 20201103
  Receipt Date: 20201103
  Transmission Date: 20210114
  Serious: Yes (Other)
  Sender: FDA-Public Use
  Company Number: DE-MYLANLABS-2020M1090997

PATIENT
  Age: 76 Year
  Sex: Male
  Weight: 95 kg

DRUGS (1)
  1. NOVOPULMON NOVOLIZER [Suspect]
     Active Substance: BUDESONIDE
     Indication: PRODUCT USED FOR UNKNOWN INDICATION
     Dosage: 200 MILLIGRAM, QD
     Dates: start: 202008

REACTIONS (1)
  - Gallbladder hypofunction [Not Recovered/Not Resolved]

NARRATIVE: CASE EVENT DATE: 202010
